FAERS Safety Report 4348436-1 (Version None)
Quarter: 2004Q2

REPORT INFORMATION
  Report Type: 
  Country: None (occurrence: None)
  Receive Date: 20040422
  Receipt Date: 20040409
  Transmission Date: 20050107
  Serious: Yes (Death)
  Sender: FDA-Public Use
  Company Number: 2004024325

PATIENT
  Age: 70 Year
  Sex: Female

DRUGS (2)
  1. DIFLUCAN [Suspect]
     Indication: COLLAPSE OF LUNG
     Dosage: ORAL
     Route: 048
  2. OXYGEN (OXYGEN) [Concomitant]

REACTIONS (2)
  - MYOCARDIAL INFARCTION [None]
  - SUDDEN DEATH [None]
